FAERS Safety Report 6367805-1 (Version None)
Quarter: 2009Q3

REPORT INFORMATION
  Report Type: 
  Country: None (occurrence: None)
  Receive Date: 20090921
  Receipt Date: 20090911
  Transmission Date: 20100115
  Serious: Yes (Hospitalization, Other)
  Sender: FDA-Public Use
  Company Number: BR-ABBOTT-08P-020-0456381-00

PATIENT
  Sex: Female

DRUGS (7)
  1. HUMIRA [Suspect]
     Indication: RHEUMATOID ARTHRITIS
     Dosage: 1 APPLICATION EVERY 14 DAYS
     Route: 058
     Dates: start: 20071017, end: 20090604
  2. CELEBRA [Concomitant]
     Indication: PAIN
     Route: 048
  3. ARAVA [Concomitant]
     Indication: RHEUMATOID ARTHRITIS
     Dates: start: 20040101
  4. ATENOLOL [Concomitant]
     Indication: HYPERTENSION
     Route: 048
  5. AMITRIPTYLINE HYDROCHLORIDE [Concomitant]
     Indication: DEPRESSION
     Route: 048
  6. AMITRIPTYLINE HYDROCHLORIDE [Concomitant]
     Indication: ANXIETY
  7. PARACETAMOL [Concomitant]
     Indication: PAIN
     Route: 048
     Dates: start: 20090401

REACTIONS (5)
  - ABASIA [None]
  - DEVICE RELATED INFECTION [None]
  - DISLOCATION OF JOINT PROSTHESIS [None]
  - PAIN IN EXTREMITY [None]
  - SCIATIC NERVE INJURY [None]
